FAERS Safety Report 7551096-X (Version None)
Quarter: 2011Q2

REPORT INFORMATION
  Report Type: 
  Country: None (occurrence: None)
  Receive Date: 20110616
  Receipt Date: 20110608
  Transmission Date: 20111010
  Serious: Yes (Other)
  Sender: FDA-Public Use
  Company Number: TR-NOVOPROD-329740

PATIENT
  Age: 8 Year
  Sex: Male

DRUGS (4)
  1. TRANEXAMIC ACID [Concomitant]
     Indication: PRODUCT USED FOR UNKNOWN INDICATION
     Dosage: UNK
     Route: 048
     Dates: start: 20110414
  2. CEFTRIAXONE [Concomitant]
     Indication: PRODUCT USED FOR UNKNOWN INDICATION
     Dosage: UNK
     Route: 042
     Dates: start: 20110427, end: 20110506
  3. NOVOSEVEN RT [Suspect]
     Indication: HAEMORRHAGE
     Dosage: 90 UNK, UNK 20 DOSES OF (90 MCG/KG)
     Route: 042
     Dates: start: 20110422, end: 20110429
  4. FERROGLYCINE SULFATE COMPLEX [Concomitant]
     Indication: PRODUCT USED FOR UNKNOWN INDICATION
     Dosage: UNK
     Route: 048
     Dates: start: 20110415, end: 20110506

REACTIONS (1)
  - HEPATIC ENZYME INCREASED [None]
